FAERS Safety Report 5988530-2 (Version None)
Quarter: 2008Q4

REPORT INFORMATION
  Report Type: 
  Country: None (occurrence: None)
  Receive Date: 20081210
  Receipt Date: 20081205
  Transmission Date: 20090506
  Serious: Yes (Other)
  Sender: FDA-Public Use
  Company Number: US-ASTRAZENECA-2008UW16174

PATIENT
  Age: 33 Year
  Sex: Male
  Weight: 116.1 kg

DRUGS (6)
  1. SEROQUEL [Suspect]
     Indication: BIPOLAR DISORDER
     Route: 048
     Dates: start: 20031010, end: 20031204
  2. SEROQUEL [Suspect]
     Route: 048
     Dates: start: 20031204, end: 20040502
  3. GEODON [Concomitant]
     Dates: start: 20040502
  4. LAMICTAL [Concomitant]
  5. ELAVIL [Concomitant]
  6. LORAZEPAM [Concomitant]

REACTIONS (4)
  - BLOOD CHOLESTEROL INCREASED [None]
  - BLOOD TRIGLYCERIDES INCREASED [None]
  - DIABETES MELLITUS [None]
  - RENAL FAILURE [None]
